FAERS Safety Report 17348332 (Version 1)
Quarter: 2020Q1

REPORT INFORMATION
  Report Type: Report from Study
  Country: US (occurrence: US)
  Receive Date: 20200129
  Receipt Date: 20200129
  Transmission Date: 20200409
  Serious: No
  Sender: FDA-Public Use
  Company Number: US-EXELIXIS-CABO-19023986

PATIENT
  Sex: Male
  Weight: 74.83 kg

DRUGS (2)
  1. CABOMETYX [Suspect]
     Active Substance: CABOZANTINIB S-MALATE
     Indication: HEPATIC CANCER
     Dosage: 60 MG, QD (AM NO FOOD 2 HRS PRIOR AND 1 HR AFTER)
     Dates: start: 20190830, end: 201910
  2. CABOMETYX [Suspect]
     Active Substance: CABOZANTINIB S-MALATE
     Dosage: 60 MG, QD (AM NO FOOD 2 HRS PRIOR AND 1 HR AFTER)
     Dates: start: 20191107

REACTIONS (8)
  - Constipation [Recovered/Resolved]
  - Rash pustular [Unknown]
  - Acne [Recovering/Resolving]
  - Nasopharyngitis [Not Recovered/Not Resolved]
  - Hypertension [Recovering/Resolving]
  - Thyroid hormones decreased [Unknown]
  - Diarrhoea [Recovered/Resolved]
  - Dysphonia [Not Recovered/Not Resolved]
